FAERS Safety Report 6109462-5 (Version None)
Quarter: 2009Q1

REPORT INFORMATION
  Report Type: 
  Country: None (occurrence: None)
  Receive Date: 20090306
  Receipt Date: 20090306
  Transmission Date: 20090719
  Serious: No
  Sender: FDA-Public Use
  Company Number: None

PATIENT
  Sex: Female
  Weight: 101.82 kg

DRUGS (8)
  1. GLIPIZIDE [Suspect]
     Dosage: 5MG TABLET 5 MG BID ORAL
     Route: 048
     Dates: start: 20080707, end: 20090305
  2. ALBUTEROL [Concomitant]
  3. ATROVENT NASAL [Concomitant]
  4. COMPAZINE [Concomitant]
  5. HYDROCHLOROTHIAZIDE [Concomitant]
  6. LISINOPRIL [Concomitant]
  7. LOVASTATIN [Concomitant]
  8. MOTRIN [Concomitant]

REACTIONS (1)
  - PRURITUS [None]
